FAERS Safety Report 9037921 (Version 2)
Quarter: 2013Q2

REPORT INFORMATION
  Report Type: Spontaneous
  Country: US (occurrence: US)
  Receive Date: 20130129
  Receipt Date: 20130510
  Transmission Date: 20140414
  Serious: Yes (Death, Other)
  Sender: FDA-Public Use
  Company Number: US-BAYER-2013-011383

PATIENT
  Age: 22 Year
  Sex: Female
  Weight: 101.59 kg

DRUGS (2)
  1. YAZ [Suspect]
  2. BEYAZ [Suspect]

REACTIONS (3)
  - Pulmonary embolism [Fatal]
  - Deep vein thrombosis [Fatal]
  - Cholelithiasis [Not Recovered/Not Resolved]
